FAERS Safety Report 6540305-1 (Version None)
Quarter: 2010Q1

REPORT INFORMATION
  Report Type: 
  Country: None (occurrence: None)
  Receive Date: 20100111
  Receipt Date: 20091231
  Transmission Date: 20100710
  Serious: Yes (Hospitalization)
  Sender: FDA-Public Use
  Company Number: DEP_00319_2010

PATIENT
  Sex: Female

DRUGS (5)
  1. GLUMETZA (GLUMETZA - METFORMIN HCL) 500 MG (NOT SPECIFIED) [Suspect]
     Indication: DRUG USE FOR UNKNOWN INDICATION
     Dosage: (500 MG QD ORAL)
     Route: 048
  2. SYNTHROID [Concomitant]
  3. VITAMIN B12 NOS [Concomitant]
  4. VITAMIN D [Concomitant]
  5. CALCIUM MAGNESIUM [Concomitant]

REACTIONS (1)
  - GASTROINTESTINAL HAEMORRHAGE [None]
